FAERS Safety Report 5767928-1 (Version None)
Quarter: 2008Q2

REPORT INFORMATION
  Report Type: 
  Country: None (occurrence: None)
  Receive Date: 20080612
  Receipt Date: 20080610
  Transmission Date: 20081010
  Serious: Yes (Death, Hospitalization, Other)
  Sender: FDA-Public Use
  Company Number: GB-WYE-G01666708

PATIENT
  Sex: Male

DRUGS (3)
  1. GEMTUZUMAB OZOGAMICIN [Suspect]
     Indication: ACUTE MYELOID LEUKAEMIA
     Dosage: UNKNOWN
     Dates: start: 20080509, end: 20080519
  2. CYTARABINE [Suspect]
     Indication: CHEMOTHERAPY
     Dosage: UNKNOWN
     Dates: start: 20080509, end: 20080519
  3. DAUNORUBICIN HCL [Suspect]
     Indication: CHEMOTHERAPY
     Dosage: UNKNOWN
     Dates: start: 20080509, end: 20080519

REACTIONS (8)
  - ADENOMA BENIGN [None]
  - CARDIAC DISORDER [None]
  - CLOSTRIDIAL INFECTION [None]
  - CONCOMITANT DISEASE PROGRESSION [None]
  - DISEASE PROGRESSION [None]
  - LUNG NEOPLASM [None]
  - PNEUMONIA [None]
  - PULMONARY HAEMORRHAGE [None]
